FAERS Safety Report 5591654-5 (Version None)
Quarter: 2008Q1

REPORT INFORMATION
  Report Type: 
  Country: None (occurrence: None)
  Receive Date: 20080115
  Receipt Date: 20080107
  Transmission Date: 20080703
  Serious: Yes (Hospitalization)
  Sender: FDA-Public Use
  Company Number: US-GENENTECH-248875

PATIENT
  Sex: Male
  Weight: 83.9 kg

DRUGS (10)
  1. BEVACIZUMAB [Suspect]
     Indication: NON-SMALL CELL LUNG CANCER
     Dosage: UNK, Q3W
     Route: 042
     Dates: start: 20070925
  2. CARBOPLATIN [Suspect]
     Indication: NON-SMALL CELL LUNG CANCER
     Dosage: UNK, Q3W
     Route: 042
     Dates: start: 20070925
  3. TAXOL [Suspect]
     Indication: NON-SMALL CELL LUNG CANCER
     Dosage: UNK, Q3W
     Route: 042
     Dates: start: 20070925
  4. PLAVIX [Concomitant]
     Indication: PROPHYLAXIS
     Dates: start: 20050101
  5. NEXIUM [Concomitant]
     Indication: GASTROOESOPHAGEAL REFLUX DISEASE
     Dates: start: 20050101
  6. CRESTOR [Concomitant]
     Indication: HYPERCHOLESTEROLAEMIA
     Dates: start: 20050101
  7. RANEXA [Concomitant]
     Indication: PROPHYLAXIS
     Dates: start: 20070301
  8. NORVASC [Concomitant]
     Indication: HYPERTENSION
     Dosage: UNK, UNK
     Dates: start: 20050101
  9. OXYCODONE [Concomitant]
     Indication: BONE PAIN
     Dates: start: 20070813
  10. MILK OF MAGNESIA [Concomitant]
     Indication: CONSTIPATION
     Dates: start: 20070816

REACTIONS (1)
  - ANAEMIA [None]
